FAERS Safety Report 19894555 (Version 1)
Quarter: 2021Q3

REPORT INFORMATION
  Report Type: Spontaneous
  Country: US (occurrence: US)
  Receive Date: 20210928
  Receipt Date: 20210928
  Transmission Date: 20211014
  Serious: No
  Sender: FDA-Public Use
  Company Number: None

PATIENT
  Age: 69 Year
  Sex: Female

DRUGS (1)
  1. XELODA [Suspect]
     Active Substance: CAPECITABINE
     Route: 048
     Dates: start: 202107

REACTIONS (5)
  - Tachycardia [None]
  - Nausea [None]
  - Weight decreased [None]
  - SARS-CoV-2 test positive [None]
  - Eating disorder [None]

NARRATIVE: CASE EVENT DATE: 20210906
